FAERS Safety Report 4381809-X (Version None)
Quarter: 2004Q2

REPORT INFORMATION
  Report Type: 
  Country: None (occurrence: None)
  Receive Date: 20040618
  Receipt Date: 20040614
  Transmission Date: 20050107
  Serious: Yes (Other)
  Sender: FDA-Public Use
  Company Number: C04-T-082

PATIENT

DRUGS (1)
  1. BUTALBITAL ACETAMINOPHEN + CAFFEINE TABS 50/500/40 [Suspect]
     Indication: TENSION HEADACHE
     Dates: start: 20040514, end: 20040614

REACTIONS (1)
  - DRUG INEFFECTIVE [None]
